FAERS Safety Report 10407012 (Version 1)
Quarter: 2014Q3

REPORT INFORMATION
  Report Type: Spontaneous
  Country: US (occurrence: None)
  Receive Date: 20140822
  Receipt Date: 20140822
  Transmission Date: 20150326
  Serious: Yes (Other)
  Sender: FDA-Public Use
  Company Number: None

PATIENT
  Age: 59 Year
  Sex: Female
  Weight: 54.43 kg

DRUGS (1)
  1. OMEPRAZOLE. [Suspect]
     Active Substance: OMEPRAZOLE
     Indication: GASTRIC ULCER
     Dosage: 20 MG 30 DAYS SUPPLY ONCE EVERY 24 HRS. TAKEN BY MOUTH
     Route: 048
     Dates: start: 20140712, end: 20140713

REACTIONS (4)
  - Decreased appetite [None]
  - Condition aggravated [None]
  - Decreased activity [None]
  - Abdominal pain upper [None]

NARRATIVE: CASE EVENT DATE: 20140711
